FAERS Safety Report 4487565-9 (Version None)
Quarter: 2004Q4

REPORT INFORMATION
  Report Type: 
  Country: None (occurrence: None)
  Receive Date: 20041028
  Receipt Date: 20041018
  Transmission Date: 20050328
  Serious: Yes (Life-Threatening)
  Sender: FDA-Public Use
  Company Number: US-JNJFOC-20041005799

PATIENT
  Age: 78 Year
  Sex: Female

DRUGS (1)
  1. REMICADE [Suspect]
     Route: 042

REACTIONS (4)
  - BLOOD IMMUNOGLOBULIN G INCREASED [None]
  - CARDIOLIPIN ANTIBODY POSITIVE [None]
  - HAEMORRHAGIC CEREBRAL INFARCTION [None]
  - HEADACHE [None]
